FAERS Safety Report 10197383 (Version 1)
Quarter: 2014Q2

REPORT INFORMATION
  Report Type: Spontaneous
  Country: US (occurrence: US)
  Receive Date: 20140527
  Receipt Date: 20140527
  Transmission Date: 20141212
  Serious: Yes (Other)
  Sender: FDA-Public Use
  Company Number: US-SA-2014SA065683

PATIENT
  Age: 75 Year
  Sex: Female

DRUGS (2)
  1. LANTUS SOLOSTAR [Suspect]
     Indication: TYPE 2 DIABETES MELLITUS
     Dosage: DOSAGE: 20 U AM AND 30 U PM
     Route: 065
  2. SOLOSTAR [Concomitant]

REACTIONS (2)
  - Myocardial infarction [Unknown]
  - Drug administration error [Unknown]
